FAERS Safety Report 11910702 (Version 3)
Quarter: 2016Q1

REPORT INFORMATION
  Report Type: Report from Study
  Country: JP (occurrence: JP)
  Receive Date: 20160112
  Receipt Date: 20160218
  Transmission Date: 20160526
  Serious: Yes (Other)
  Sender: FDA-Public Use
  Company Number: JP-WATSON-2015-29079

PATIENT
  Age: 68 Year
  Sex: Male

DRUGS (2)
  1. CERNILTON N [Concomitant]
     Indication: PRODUCT USED FOR UNKNOWN INDICATION
     Dosage: 6 DF, UNKNOWN
  2. RAPAFLO [Suspect]
     Active Substance: SILODOSIN
     Indication: DYSURIA
     Dosage: 8 MG, DAILY
     Route: 048
     Dates: start: 20150820, end: 20151225

REACTIONS (1)
  - Colostomy [Unknown]

NARRATIVE: CASE EVENT DATE: 2015
